FAERS Safety Report 9852851 (Version 1)
Quarter: 2014Q1

REPORT INFORMATION
  Report Type: Spontaneous
  Country: JP (occurrence: JP)
  Receive Date: 20140129
  Receipt Date: 20140129
  Transmission Date: 20141002
  Serious: Yes (Other)
  Sender: FDA-Public Use
  Company Number: JP-PFIZER INC-2014024833

PATIENT
  Sex: Female

DRUGS (2)
  1. NORVASC [Suspect]
     Indication: BLOOD PRESSURE INADEQUATELY CONTROLLED
     Dosage: 2.5 MG, 2X/DAY
     Route: 048
  2. MUCOSOLVAN [Suspect]
     Indication: PRODUCTIVE COUGH

REACTIONS (6)
  - Drug ineffective [Unknown]
  - Blood pressure increased [Unknown]
  - Dizziness [Unknown]
  - Dizziness [Unknown]
  - Sputum increased [Unknown]
  - Headache [Unknown]
